FAERS Safety Report 8505728-X (Version None)
Quarter: 2012Q3

REPORT INFORMATION
  Report Type: 
  Country: None (occurrence: None)
  Receive Date: 20120706
  Receipt Date: 20120706
  Transmission Date: 20120928
  Serious: Yes (Hospitalization)
  Sender: FDA-Public Use
  Company Number: None

PATIENT
  Sex: Female
  Weight: 95.4 kg

DRUGS (1)
  1. PIOGLITAZONE [Suspect]
     Indication: TYPE 2 DIABETES MELLITUS
     Dates: start: 20101116, end: 20120629

REACTIONS (1)
  - CARDIAC FAILURE CONGESTIVE [None]
